FAERS Safety Report 7153744-5 (Version None)
Quarter: 2010Q4

REPORT INFORMATION
  Report Type: 
  Country: None (occurrence: None)
  Receive Date: 20101213
  Receipt Date: 20101203
  Transmission Date: 20110411
  Serious: Yes (Hospitalization)
  Sender: FDA-Public Use
  Company Number: BR-ASTRAZENECA-2010SE06324

PATIENT
  Sex: Male

DRUGS (2)
  1. SEROQUEL XRO [Suspect]
     Indication: BIPOLAR I DISORDER
     Route: 048
     Dates: start: 20100101, end: 20100201
  2. OXCARBAZEPINE [Interacting]
     Indication: BIPOLAR I DISORDER
     Route: 048
     Dates: end: 20100201

REACTIONS (5)
  - DRUG INTERACTION [None]
  - DYSPHAGIA [None]
  - GENERALISED ERYTHEMA [None]
  - OCULAR HYPERAEMIA [None]
  - PYREXIA [None]
